FAERS Safety Report 8365832-6 (Version None)
Quarter: 2012Q2

REPORT INFORMATION
  Report Type: 
  Country: None (occurrence: None)
  Receive Date: 20120515
  Receipt Date: 20120430
  Transmission Date: 20120825
  Serious: Yes (Disabling)
  Sender: FDA-Public Use
  Company Number: 2012P1014081

PATIENT
  Age: 34 Year
  Sex: Male

DRUGS (4)
  1. IBUPROFEN [Concomitant]
  2. CLOBETASOL PROPIONATE [Suspect]
     Indication: PSORIASIS
     Dosage: BID;TOP ; X1;TOP
     Route: 061
     Dates: start: 20110801, end: 20120408
  3. CLOBETASOL PROPIONATE [Suspect]
     Indication: PSORIASIS
     Dosage: BID;TOP ; X1;TOP
     Route: 061
     Dates: start: 20120411, end: 20120411
  4. CLOBETASOL PROPIONATE [Suspect]

REACTIONS (6)
  - RESPIRATORY DISORDER [None]
  - CHEST PAIN [None]
  - IMPAIRED DRIVING ABILITY [None]
  - PRODUCT QUALITY ISSUE [None]
  - HEADACHE [None]
  - IMPAIRED WORK ABILITY [None]
